FAERS Safety Report 5362487-X (Version None)
Quarter: 2007Q2

REPORT INFORMATION
  Report Type: 
  Country: None (occurrence: None)
  Receive Date: 20070619
  Receipt Date: 20070524
  Transmission Date: 20071010
  Serious: Yes (Hospitalization)
  Sender: FDA-Public Use
  Company Number: JP-ROCHE-499535

PATIENT
  Sex: Female

DRUGS (2)
  1. TAMIFLU [Suspect]
     Indication: INFLUENZA
     Route: 048
     Dates: start: 20040201
  2. 1 CONCOMITANT DRUG [Concomitant]
     Dosage: DRUG: ANTIOBIOTIC PREPARATIONS.
     Dates: start: 20040201

REACTIONS (2)
  - COUGH [None]
  - PRURIGO [None]
